FAERS Safety Report 8766399 (Version 2)
Quarter: 2013Q1

REPORT INFORMATION
  Report Type: Report from Study
  Country: US (occurrence: US)
  Receive Date: 20120904
  Receipt Date: 20130314
  Transmission Date: 20140127
  Serious: Yes (Death, Hospitalization)
  Sender: FDA-Public Use
  Company Number: US-MERCK-1208USA012246

PATIENT
  Age: 15 Year
  Sex: Male
  Weight: 58.5 kg

DRUGS (2)
  1. VORINOSTAT [Suspect]
     Indication: BRAIN STEM GLIOMA
     Dosage: 230 MG/M2, QD ON DAYS 1-5 WEEKLY, CYCLE 1
     Route: 048
     Dates: start: 20120802, end: 20120812
  2. VORINOSTAT [Suspect]
     Dosage: 230 MG/M2, QD ON DAYS 1-5 WEEKLY
     Route: 048
     Dates: start: 20120816, end: 20120824

REACTIONS (5)
  - Confusional state [Not Recovered/Not Resolved]
  - Dysphagia [Not Recovered/Not Resolved]
  - Aspiration [Not Recovered/Not Resolved]
  - Somnolence [Not Recovered/Not Resolved]
  - Death [Fatal]
